FAERS Safety Report 10080879 (Version 1)
Quarter: 2014Q2

REPORT INFORMATION
  Report Type: Spontaneous
  Country: FR (occurrence: FR)
  Receive Date: 20140416
  Receipt Date: 20140416
  Transmission Date: 20141212
  Serious: Yes (Hospitalization)
  Sender: FDA-Public Use
  Company Number: FR-TEVA-475188ISR

PATIENT
  Age: 20 Year
  Sex: Female
  Weight: 102 kg

DRUGS (3)
  1. ANTADYS 100MG [Suspect]
     Indication: METRORRHAGIA
     Dosage: 2 TABLET DAILY;
     Route: 048
     Dates: start: 201309, end: 20131002
  2. TRIAFEMI [Concomitant]
  3. PROZAC [Concomitant]

REACTIONS (1)
  - Pyelonephritis acute [Recovered/Resolved]
